FAERS Safety Report 7055902-7 (Version None)
Quarter: 2010Q4

REPORT INFORMATION
  Report Type: 
  Country: None (occurrence: None)
  Receive Date: 20101021
  Receipt Date: 20101006
  Transmission Date: 20110411
  Serious: Yes (Other)
  Sender: FDA-Public Use
  Company Number: PL-PFIZER INC-2010127386

PATIENT
  Age: 54 Year
  Sex: Male

DRUGS (2)
  1. SUNITINIB MALATE [Suspect]
     Indication: RENAL CANCER METASTATIC
     Dosage: 50 MG, 1X/DAY
     Dates: start: 20060101
  2. SUNITINIB MALATE [Suspect]
     Indication: METASTASES TO LUNG
     Dosage: 37.5 MG, 1X/DAY
     Dates: end: 20080301

REACTIONS (8)
  - AGEUSIA [None]
  - ASTHENIA [None]
  - DISEASE PROGRESSION [None]
  - DYSPHAGIA [None]
  - MUSCLE CONTRACTIONS INVOLUNTARY [None]
  - PALMAR-PLANTAR ERYTHRODYSAESTHESIA SYNDROME [None]
  - RENAL CANCER METASTATIC [None]
  - SKIN ULCER [None]
